FAERS Safety Report 6077543-0 (Version None)
Quarter: 2009Q1

REPORT INFORMATION
  Report Type: 
  Country: None (occurrence: None)
  Receive Date: 20090213
  Receipt Date: 20090205
  Transmission Date: 20090719
  Serious: Yes (Life-Threatening, Hospitalization)
  Sender: FDA-Public Use
  Company Number: US-JNJFOC-20090202720

PATIENT
  Sex: Male
  Weight: 80.29 kg

DRUGS (7)
  1. REMICADE [Suspect]
     Indication: JUVENILE ARTHRITIS
     Route: 042
  2. AZATHIOPRINE [Suspect]
     Indication: SYSTEMIC LUPUS ERYTHEMATOSUS
     Route: 048
  3. ACETAMINOPHEN [Concomitant]
     Indication: PYREXIA
  4. METHYLPREDNISOLONE 4MG TAB [Concomitant]
  5. ALENDRONATE SODIUM [Concomitant]
  6. HYDROXYCHLOROQUINE SULFATE [Concomitant]
  7. NEXIUM [Concomitant]

REACTIONS (3)
  - ACUTE PULMONARY HISTOPLASMOSIS [None]
  - HEPATITIS TOXIC [None]
  - RASH MACULO-PAPULAR [None]
